FAERS Safety Report 8201626-X (Version None)
Quarter: 2012Q1

REPORT INFORMATION
  Report Type: 
  Country: None (occurrence: None)
  Receive Date: 20120307
  Receipt Date: 20120228
  Transmission Date: 20120608
  Serious: Yes (Congenital Anomaly, Other)
  Sender: FDA-Public Use
  Company Number: AUR-APL-2012-01169

PATIENT
  Sex: Male
  Weight: 0.68 kg

DRUGS (2)
  1. LAMOTRIGINE [Suspect]
     Indication: CONVULSION
     Dosage: 50 MG (25 MG, 2 IN 1 D), TRANSPLACENTAL
     Route: 064
  2. LEVOTHYROXINE SODIUM [Concomitant]

REACTIONS (3)
  - PREMATURE BABY [None]
  - MATERNAL DRUGS AFFECTING FOETUS [None]
  - FALLOT'S TETRALOGY [None]
